FAERS Safety Report 24927871 (Version 1)
Quarter: 2025Q1

REPORT INFORMATION
  Report Type: Spontaneous
  Country: CA (occurrence: CA)
  Receive Date: 20250205
  Receipt Date: 20250205
  Transmission Date: 20250409
  Serious: Yes (Other)
  Sender: ROCHE
  Company Number: CA-ROCHE-10000197874

PATIENT
  Age: 3 Month
  Sex: Male

DRUGS (1)
  1. RITUXIMAB [Suspect]
     Active Substance: RITUXIMAB
     Indication: Combined immunodeficiency
     Route: 065

REACTIONS (2)
  - Device related bacteraemia [Unknown]
  - Off label use [Unknown]
